APPROVED DRUG PRODUCT: ENALAPRIL MALEATE
Active Ingredient: ENALAPRIL MALEATE
Strength: 1MG/ML
Dosage Form/Route: SOLUTION;ORAL
Application: A214467 | Product #001 | TE Code: AB
Applicant: ANNORA PHARMA PRIVATE LTD
Approved: Feb 24, 2022 | RLD: No | RS: No | Type: RX